FAERS Safety Report 4767352-4 (Version None)
Quarter: 2005Q3

REPORT INFORMATION
  Report Type: 
  Country: None (occurrence: None)
  Receive Date: 20050913
  Receipt Date: 20050809
  Transmission Date: 20060218
  Serious: Yes (Hospitalization, Other)
  Sender: FDA-Public Use
  Company Number: US-BRISTOL-MYERS SQUIBB COMPANY-13068689

PATIENT
  Age: 51 Year
  Sex: Female
  Weight: 39 kg

DRUGS (2)
  1. CARBOPLATIN [Suspect]
     Indication: BREAST CANCER
     Route: 042
     Dates: start: 20050613, end: 20050613
  2. GEMCITABINE HCL [Suspect]
     Indication: BREAST CANCER
     Route: 042
     Dates: start: 20050613, end: 20050620

REACTIONS (5)
  - ANAEMIA [None]
  - DEHYDRATION [None]
  - HYPOKALAEMIA [None]
  - HYPOPHOSPHATAEMIA [None]
  - RENAL SALT-WASTING SYNDROME [None]
